FAERS Safety Report 6907821-1 (Version None)
Quarter: 2010Q3

REPORT INFORMATION
  Report Type: 
  Country: None (occurrence: None)
  Receive Date: 20100712
  Receipt Date: 20100316
  Transmission Date: 20110219
  Serious: No
  Sender: FDA-Public Use
  Company Number: US-000038

PATIENT
  Sex: Female
  Weight: 16.7831 kg

DRUGS (2)
  1. KUVAN [Suspect]
     Indication: PHENYLKETONURIA
     Dosage: (300 MG QD ORAL), (300 MG QD ORAL)
     Route: 048
     Dates: start: 20091210, end: 20091213
  2. KUVAN [Suspect]
     Indication: PHENYLKETONURIA
     Dosage: (300 MG QD ORAL), (300 MG QD ORAL)
     Route: 048
     Dates: start: 20100105, end: 20100203

REACTIONS (4)
  - DIARRHOEA [None]
  - DYSPNOEA [None]
  - NASOPHARYNGITIS [None]
  - VOMITING [None]
